FAERS Safety Report 26100617 (Version 1)
Quarter: 2025Q4

REPORT INFORMATION
  Report Type: Spontaneous
  Country: CN (occurrence: CN)
  Receive Date: 20251128
  Receipt Date: 20251128
  Transmission Date: 20260117
  Serious: Yes (Hospitalization)
  Sender: SANOFI AVENTIS
  Company Number: CN-SA-2025SA352606

PATIENT
  Age: 76 Year
  Sex: Male
  Weight: 51 kg

DRUGS (1)
  1. DUPIXENT [Suspect]
     Active Substance: DUPILUMAB
     Indication: Dermatitis atopic
     Dosage: 300 MG, Q3W 1-4 COURSES OF TREATMENT (ON AUGUST 28, SEPTEMBER 11, SEPTEMBER 26, AND OCTOBER 10)
     Route: 058
     Dates: start: 20250828, end: 20251010

REACTIONS (8)
  - Drug eruption [Recovering/Resolving]
  - Temperature intolerance [Unknown]
  - Oedema peripheral [Unknown]
  - Pigmentation disorder [Unknown]
  - Peripheral swelling [Unknown]
  - Erythema [Not Recovered/Not Resolved]
  - Skin exfoliation [Recovered/Resolved]
  - Pruritus [Unknown]

NARRATIVE: CASE EVENT DATE: 20250101
